FAERS Safety Report 7662346-3 (Version None)
Quarter: 2011Q3

REPORT INFORMATION
  Report Type: 
  Country: None (occurrence: None)
  Receive Date: 20110805
  Receipt Date: 20101227
  Transmission Date: 20111222
  Serious: No
  Sender: FDA-Public Use
  Company Number: US-ABBOTT-10P-163-0694480-00

PATIENT
  Sex: Female
  Weight: 54.48 kg

DRUGS (17)
  1. VITAMIN E [Concomitant]
     Indication: VITAMIN SUPPLEMENTATION
     Route: 048
  2. CALCIUM W/D/MAG [Concomitant]
     Indication: VITAMIN SUPPLEMENTATION
     Route: 048
  3. GLUTAMINE/CHONDROITIN/MSM [Concomitant]
     Indication: VITAMIN SUPPLEMENTATION
     Route: 048
  4. PROBIOTIC [Concomitant]
     Indication: SUPPLEMENTATION THERAPY
     Dosage: 15/35 DAILY
     Route: 048
  5. VITAMIN K/D/CA [Concomitant]
     Indication: VITAMIN SUPPLEMENTATION
     Route: 048
  6. NIASPAN [Suspect]
     Route: 048
     Dates: start: 20101010, end: 20101212
  7. VITAMIN D [Concomitant]
     Indication: VITAMIN SUPPLEMENTATION
     Route: 048
  8. CINNAMON [Concomitant]
     Indication: SUPPLEMENTATION THERAPY
     Route: 048
  9. BROMOLINE [Concomitant]
     Indication: SUPPLEMENTATION THERAPY
     Route: 048
  10. SYNERGY MULTIVIT FOR WOMEN [Concomitant]
     Indication: VITAMIN SUPPLEMENTATION
     Route: 048
  11. NIASPAN [Suspect]
     Indication: DYSLIPIDAEMIA
     Route: 048
     Dates: start: 20101213, end: 20101226
  12. CALCIUM W/D [Concomitant]
     Indication: VITAMIN SUPPLEMENTATION
     Dosage: 1200/1200 IU VIT D-DAILY
     Route: 048
  13. ASCORBIC ACID [Concomitant]
     Indication: VITAMIN SUPPLEMENTATION
     Route: 048
  14. FLAX SEED OIL [Concomitant]
     Indication: SUPPLEMENTATION THERAPY
     Route: 048
  15. FISH OIL [Concomitant]
     Indication: SUPPLEMENTATION THERAPY
     Route: 048
  16. MILK THISTLE [Concomitant]
     Indication: PRODUCT USED FOR UNKNOWN INDICATION
     Route: 048
  17. POTASSIUM/MAGNESIUM [Concomitant]
     Indication: VITAMIN SUPPLEMENTATION
     Dosage: 545/200
     Route: 048

REACTIONS (4)
  - ERYTHEMA [None]
  - URTICARIA [None]
  - FLUSHING [None]
  - PRURITUS [None]
